FAERS Safety Report 9270372 (Version 1)
Quarter: 2013Q2

REPORT INFORMATION
  Report Type: Report from Study
  Country: VE (occurrence: VE)
  Receive Date: 20130503
  Receipt Date: 20130503
  Transmission Date: 20140414
  Serious: Yes (Other)
  Sender: FDA-Public Use
  Company Number: VE-ABBOTT-13P-178-1083448-00

PATIENT
  Age: 48 Year
  Sex: Female
  Weight: 59 kg

DRUGS (2)
  1. HUMIRA [Suspect]
     Indication: RHEUMATOID ARTHRITIS
     Route: 058
     Dates: start: 20100727, end: 201211
  2. PREDNISONA [Concomitant]
     Indication: RHEUMATOID ARTHRITIS
     Dosage: DAILY, ROUTE VO
     Dates: start: 2010, end: 201211

REACTIONS (3)
  - Blindness [Recovering/Resolving]
  - Haematoma [Recovering/Resolving]
  - Urinary tract infection [Recovering/Resolving]
